FAERS Safety Report 24407501 (Version 2)
Quarter: 2024Q4

REPORT INFORMATION
  Report Type: Spontaneous
  Country: US (occurrence: US)
  Receive Date: 20241007
  Receipt Date: 20241014
  Transmission Date: 20250115
  Serious: Yes (Death, Life-Threatening, Hospitalization, Other)
  Sender: CIPLA
  Company Number: US-CIPLA LTD.-2024US10885

PATIENT

DRUGS (2)
  1. AMLODIPINE [Suspect]
     Active Substance: AMLODIPINE BESYLATE
     Indication: Product used for unknown indication
     Dosage: 200-300 MG, UNK
     Route: 048
  2. FLUOXETINE [Concomitant]
     Active Substance: FLUOXETINE HYDROCHLORIDE
     Indication: Product used for unknown indication
     Dosage: UNK
     Route: 048

REACTIONS (9)
  - Cardiac arrest [Fatal]
  - Non-cardiogenic pulmonary oedema [Recovered/Resolved]
  - Vasoplegia syndrome [Not Recovered/Not Resolved]
  - Multiple organ dysfunction syndrome [Unknown]
  - Renal impairment [Unknown]
  - Intentional overdose [Unknown]
  - Toxicity to various agents [Unknown]
  - Generalised oedema [Unknown]
  - Somnolence [Unknown]
